FAERS Safety Report 5828647-6 (Version None)
Quarter: 2008Q3

REPORT INFORMATION
  Report Type: 
  Country: None (occurrence: None)
  Receive Date: 20080731
  Receipt Date: 20080721
  Transmission Date: 20090109
  Serious: Yes (Hospitalization)
  Sender: FDA-Public Use
  Company Number: B0530108A

PATIENT
  Age: 81 Year
  Sex: Male

DRUGS (1)
  1. ARIXTRA [Suspect]
     Indication: PULMONARY EMBOLISM
     Dosage: 7.5MG PER DAY
     Route: 058
     Dates: start: 20080331, end: 20080705

REACTIONS (7)
  - ANAEMIA [None]
  - INCORRECT DRUG ADMINISTRATION DURATION [None]
  - MUSCLE HAEMORRHAGE [None]
  - NERVE COMPRESSION [None]
  - PAIN IN EXTREMITY [None]
  - PARESIS [None]
  - SENSORY LOSS [None]
